FAERS Safety Report 8556377-9 (Version None)
Quarter: 2012Q3

REPORT INFORMATION
  Report Type: 
  Country: None (occurrence: None)
  Receive Date: 20120801
  Receipt Date: 20120726
  Transmission Date: 20120928
  Serious: No
  Sender: FDA-Public Use
  Company Number: PHEH2011US04180

PATIENT
  Sex: Male

DRUGS (16)
  1. TASIGNA [Suspect]
     Indication: CHRONIC MYELOID LEUKAEMIA
     Dosage: 300 MG, BID
     Route: 048
     Dates: start: 20101230
  2. RESTASIS [Concomitant]
     Indication: LACRIMATION INCREASED
     Dosage: 1 DRP, Q12H
     Route: 047
     Dates: start: 20110701
  3. CINNAMON [Concomitant]
  4. LOVAZA [Concomitant]
  5. TASIGNA [Suspect]
     Dosage: UNK
     Dates: start: 20110106
  6. CHROMIUM CHLORIDE [Concomitant]
  7. ALLOPURINOL [Concomitant]
     Indication: BLOOD URIC ACID
     Dosage: 300 MG, QD
     Dates: start: 20110318
  8. ZINC SULFATE [Concomitant]
  9. ALPHA LIPOIC ACID [Concomitant]
  10. SELENIUM [Concomitant]
  11. METFORMIN HYDROCHLORIDE [Concomitant]
  12. METFORMIN HCL [Concomitant]
     Indication: DIABETES MELLITUS
     Dosage: 500 MG, BID
     Dates: start: 20110401
  13. SPIRULINA [Concomitant]
  14. CHLORELLA VULGARIS [Concomitant]
  15. FERROUS SULFATE TAB [Concomitant]
     Indication: IRON DEFICIENCY
     Dates: start: 20110418
  16. MULTIPLE VITAMINS [Concomitant]
     Dosage: 1 DF, QD

REACTIONS (8)
  - RASH [None]
  - PHOTOSENSITIVITY REACTION [None]
  - MEMORY IMPAIRMENT [None]
  - CONSTIPATION [None]
  - BLOOD GLUCOSE INCREASED [None]
  - ABNORMAL SENSATION IN EYE [None]
  - DRY EYE [None]
  - EYE PAIN [None]
